FAERS Safety Report 22147921 (Version 7)
Quarter: 2025Q1

REPORT INFORMATION
  Report Type: Report from Study
  Country: CA (occurrence: CA)
  Receive Date: 20230328
  Receipt Date: 20250207
  Transmission Date: 20250409
  Serious: Yes (Death, Hospitalization, Other)
  Sender: TAKEDA
  Company Number: CA-TAKEDA-2023TUS024079

PATIENT
  Age: 61 Year
  Sex: Male

DRUGS (10)
  1. LANADELUMAB [Suspect]
     Active Substance: LANADELUMAB
     Indication: Hereditary angioedema with C1 esterase inhibitor deficiency
     Dosage: 2 DOSAGE FORM, Q2WEEKS
     Dates: start: 20211111
  2. LANADELUMAB [Suspect]
     Active Substance: LANADELUMAB
     Dosage: UNK, Q4WEEKS
  3. CINACALCET [Suspect]
     Active Substance: CINACALCET
     Indication: Product used for unknown indication
  4. CINACALCET [Suspect]
     Active Substance: CINACALCET
  5. DANAZOL [Concomitant]
     Active Substance: DANAZOL
  6. METRONIDAZOLE [Concomitant]
     Active Substance: METRONIDAZOLE
  7. CALCIUM [Concomitant]
     Active Substance: CALCIUM
  8. AMOXICILLIN\CLAVULANIC ACID [Concomitant]
     Active Substance: AMOXICILLIN\CLAVULANIC ACID
  9. PENTOXIFYLLINE [Concomitant]
     Active Substance: PENTOXIFYLLINE
  10. FIRAZYR [Concomitant]
     Active Substance: ICATIBANT ACETATE

REACTIONS (12)
  - Death [Fatal]
  - Pneumonia [Unknown]
  - Atrial fibrillation [Unknown]
  - Influenza [Recovering/Resolving]
  - Otitis media [Unknown]
  - Osteomyelitis [Not Recovered/Not Resolved]
  - Jaw fracture [Unknown]
  - Product use complaint [Unknown]
  - Product distribution issue [Unknown]
  - Product dose omission issue [Unknown]
  - Product use issue [Unknown]
  - Hereditary angioedema [Recovered/Resolved]

NARRATIVE: CASE EVENT DATE: 20230319
